FAERS Safety Report 4533550-8 (Version None)
Quarter: 2004Q4

REPORT INFORMATION
  Report Type: 
  Country: None (occurrence: None)
  Receive Date: 20041221
  Receipt Date: 20041210
  Transmission Date: 20050328
  Serious: Yes (Other)
  Sender: FDA-Public Use
  Company Number: FR-NOVOPROD-240944

PATIENT
  Age: 17 Year
  Sex: Male
  Weight: 67 kg

DRUGS (2)
  1. NORDITROPIN SIMPLEXX [Suspect]
     Indication: GROWTH HORMONE DEFICIENCY
     Dosage: 2.2 MG, QD
     Route: 058
     Dates: start: 20041130, end: 20041202
  2. NORDITROPIN SIMPLEXX [Suspect]

REACTIONS (4)
  - ANXIETY [None]
  - MALAISE [None]
  - PARAESTHESIA [None]
  - PAROSMIA [None]
